FAERS Safety Report 10173141 (Version 1)
Quarter: 2014Q2

REPORT INFORMATION
  Report Type: Spontaneous
  Country: US (occurrence: US)
  Receive Date: 20140515
  Receipt Date: 20140515
  Transmission Date: 20141212
  Serious: No
  Sender: FDA-Public Use
  Company Number: US-PFIZER INC-2014129299

PATIENT
  Age: 68 Year
  Sex: Female
  Weight: 93.42 kg

DRUGS (8)
  1. LYRICA [Suspect]
     Indication: TRIGEMINAL NEURALGIA
     Dosage: 75 MG, 2X/DAY
     Route: 048
     Dates: start: 20140501
  2. METFORMIN [Concomitant]
     Dosage: 2000 MG, DAILY (500 MG, 4 PILLS A DAY)
  3. PRILOSEC [Concomitant]
     Indication: DYSPEPSIA
     Dosage: 40 MG, 1X/DAY
  4. COREG [Concomitant]
     Dosage: 25 MG, 2X/DAY
  5. CELEXA [Concomitant]
     Dosage: 25 MG, 1X/DAY
  6. COZAAR [Concomitant]
     Dosage: 100 MG, 2X/DAY
  7. PRAVACHOL [Concomitant]
     Dosage: 20 MG, 1X/DAY
  8. NOVOLOG [Concomitant]
     Dosage: UNK

REACTIONS (2)
  - Dizziness [Unknown]
  - Drug ineffective [Unknown]
